FAERS Safety Report 10057626 (Version 4)
Quarter: 2015Q4

REPORT INFORMATION
  Report Type: Report from Study
  Country: US (occurrence: US)
  Receive Date: 20140404
  Receipt Date: 20151029
  Transmission Date: 20160304
  Serious: Yes (Hospitalization, Other)
  Sender: FDA-Public Use
  Company Number: US-BIOGENIDEC-2014BI029427

PATIENT
  Age: 58 Year
  Sex: Male

DRUGS (12)
  1. OMEPRAZOLE. [Concomitant]
     Active Substance: OMEPRAZOLE
  2. AVONEX [Suspect]
     Active Substance: INTERFERON BETA-1A
     Indication: MULTIPLE SCLEROSIS
     Route: 030
     Dates: end: 20140205
  3. DEXAMETHASONE. [Concomitant]
     Active Substance: DEXAMETHASONE
  4. AVONEX [Suspect]
     Active Substance: INTERFERON BETA-1A
     Indication: MULTIPLE SCLEROSIS
     Route: 030
     Dates: start: 20070805
  5. ASPIR-81 [Concomitant]
     Active Substance: ASPIRIN
  6. AVONEX [Suspect]
     Active Substance: INTERFERON BETA-1A
     Indication: MULTIPLE SCLEROSIS
     Route: 030
     Dates: start: 200707
  7. AVONEX [Suspect]
     Active Substance: INTERFERON BETA-1A
     Indication: MULTIPLE SCLEROSIS
     Route: 030
     Dates: end: 20080130
  8. AVONEX [Suspect]
     Active Substance: INTERFERON BETA-1A
     Indication: MULTIPLE SCLEROSIS
     Route: 030
     Dates: start: 201001, end: 201001
  9. IBUPROFEN. [Concomitant]
     Active Substance: IBUPROFEN
  10. BIOTIN [Concomitant]
     Active Substance: BIOTIN
  11. ECOTRIN [Concomitant]
     Active Substance: ASPIRIN
  12. VITAMIN D [Concomitant]
     Active Substance: CHOLECALCIFEROL

REACTIONS (2)
  - Malignant melanoma [Unknown]
  - Brain neoplasm malignant [Not Recovered/Not Resolved]

NARRATIVE: CASE EVENT DATE: 2013
